FAERS Safety Report 17316454 (Version 1)
Quarter: 2020Q1

REPORT INFORMATION
  Report Type: Spontaneous
  Country: GB (occurrence: GB)
  Receive Date: 20200124
  Receipt Date: 20200124
  Transmission Date: 20200409
  Serious: Yes (Other)
  Sender: FDA-Public Use
  Company Number: GB-PFIZER INC-2020029437

PATIENT
  Age: 40 Year
  Sex: Female

DRUGS (4)
  1. PROGESTERONE. [Interacting]
     Active Substance: PROGESTERONE
     Indication: PREGNANCY
     Dosage: UNK
  2. HUMIRA [Interacting]
     Active Substance: ADALIMUMAB
     Indication: PREGNANCY
     Dosage: UNK
     Route: 058
  3. ASPIRIN [ACETYLSALICYLIC ACID] [Interacting]
     Active Substance: ASPIRIN
     Dosage: UNK
     Route: 048
  4. FRAGMIN [Suspect]
     Active Substance: DALTEPARIN SODIUM
     Indication: PREGNANCY
     Dosage: UNK

REACTIONS (8)
  - Prolonged labour [Unknown]
  - Product administration error [Unknown]
  - Abortion spontaneous [Recovered/Resolved]
  - Surgical failure [Unknown]
  - Fallopian tube disorder [Unknown]
  - Labelled drug-drug interaction medication error [Unknown]
  - Off label use [Unknown]
  - Vaginal haemorrhage [Unknown]

NARRATIVE: CASE EVENT DATE: 2016
